FAERS Safety Report 7693494-X (Version None)
Quarter: 2011Q3

REPORT INFORMATION
  Report Type: 
  Country: None (occurrence: None)
  Receive Date: 20110819
  Receipt Date: 20110819
  Transmission Date: 20111222
  Serious: Yes (Death)
  Sender: FDA-Public Use
  Company Number: None

PATIENT
  Sex: Male
  Weight: 71.667 kg

DRUGS (1)
  1. TRIAZOLAM-GENERIC FOR:HALCION- [Suspect]
     Indication: SOMNOLENCE
     Dosage: 1-2 TABLETS AT BEDTIME
     Dates: start: 20100809, end: 20110113

REACTIONS (5)
  - ABNORMAL BEHAVIOUR [None]
  - NEGATIVISM [None]
  - COMPLETED SUICIDE [None]
  - HYPOCHONDRIASIS [None]
  - AGGRESSION [None]
